FAERS Safety Report 7448092-X (Version None)
Quarter: 2011Q2

REPORT INFORMATION
  Report Type: 
  Country: None (occurrence: None)
  Receive Date: 20110429
  Receipt Date: 20100317
  Transmission Date: 20111010
  Serious: No
  Sender: FDA-Public Use
  Company Number: US-ASTRAZENECA-2010SE11682

PATIENT
  Age: 66 Year
  Sex: Female
  Weight: 108.9 kg

DRUGS (9)
  1. NEXIUM [Suspect]
     Route: 048
     Dates: start: 20050101, end: 20050101
  2. FLOVENT [Concomitant]
     Indication: CHRONIC OBSTRUCTIVE PULMONARY DISEASE
  3. ATROVENT [Concomitant]
     Indication: CHRONIC OBSTRUCTIVE PULMONARY DISEASE
  4. XOPENEX [Concomitant]
  5. DIOVAN [Concomitant]
     Indication: HYPERTENSION
  6. COZAAR [Concomitant]
  7. TOPROL-XL [Concomitant]
     Indication: HYPERTENSION
  8. PRILOSEC [Suspect]
     Route: 048
     Dates: start: 20100201
  9. NORVASC [Concomitant]
     Indication: HYPERTENSION

REACTIONS (2)
  - TENDON PAIN [None]
  - MYALGIA [None]
